FAERS Safety Report 14203429 (Version 5)
Quarter: 2018Q2

REPORT INFORMATION
  Report Type: Spontaneous
  Country: JP (occurrence: JP)
  Receive Date: 20171120
  Receipt Date: 20180528
  Transmission Date: 20180711
  Serious: Yes (Death, Hospitalization, Other)
  Sender: FDA-Public Use
  Company Number: JP-009507513-1711JPN000871J

PATIENT
  Age: 66 Year
  Sex: Male
  Weight: 55 kg

DRUGS (5)
  1. CALONAL [Suspect]
     Active Substance: ACETAMINOPHEN
     Dosage: 3 TABLETS, TID
     Route: 048
     Dates: start: 20170802, end: 20171110
  2. LANSOPRAZOLE. [Suspect]
     Active Substance: LANSOPRAZOLE
     Dosage: 1 TABLET, QD
     Route: 048
     Dates: start: 20170802, end: 20171110
  3. LOXOPROFEN SODIUM HYDRATE [Suspect]
     Active Substance: LOXOPROFEN SODIUM DIHYDRATE
     Dosage: 1 TABLET, BID
     Route: 048
     Dates: start: 20170802, end: 20171110
  4. CARBOCISTEINE [Suspect]
     Active Substance: CARBOCYSTEINE
     Dosage: 2 TABLETS, TID
     Route: 048
     Dates: start: 20170927, end: 20171110
  5. KEYTRUDA [Suspect]
     Active Substance: PEMBROLIZUMAB
     Indication: LUNG ADENOCARCINOMA STAGE IV
     Dosage: 200 MG, Q3W
     Route: 041
     Dates: start: 20170907, end: 20171023

REACTIONS (2)
  - Pulmonary oedema [Fatal]
  - Interstitial lung disease [Fatal]

NARRATIVE: CASE EVENT DATE: 20171110
